FAERS Safety Report 22044854 (Version 1)
Quarter: 2023Q1

REPORT INFORMATION
  Report Type: Spontaneous
  Country: CN (occurrence: CN)
  Receive Date: 20230228
  Receipt Date: 20230228
  Transmission Date: 20230418
  Serious: Yes (Other)
  Sender: FDA-Public Use
  Company Number: CN-SA-SAC20230224001552

PATIENT
  Age: 63 Year
  Sex: Male
  Weight: 75 kg

DRUGS (2)
  1. LANTUS [Suspect]
     Active Substance: INSULIN GLARGINE
     Indication: Diabetes mellitus
     Dosage: 10IU; QD
     Route: 058
     Dates: start: 20230201, end: 20230202
  2. LANTUS [Suspect]
     Active Substance: INSULIN GLARGINE
     Dosage: UNK IU, QD
     Route: 058
     Dates: start: 20230202

REACTIONS (4)
  - Starvation [Recovering/Resolving]
  - Cold sweat [Recovering/Resolving]
  - Asthenia [Recovering/Resolving]
  - Hypoglycaemia [Recovering/Resolving]

NARRATIVE: CASE EVENT DATE: 20230202
